FAERS Safety Report 22144560 (Version 2)
Quarter: 2023Q1

REPORT INFORMATION
  Report Type: Report from Study
  Country: US (occurrence: US)
  Receive Date: 20230328
  Receipt Date: 20230330
  Transmission Date: 20230418
  Serious: No
  Sender: FDA-Public Use
  Company Number: US-002147023-NVSC2023US068086

PATIENT
  Sex: Female

DRUGS (8)
  1. TRIAMCINOLONE ACETONIDE [Suspect]
     Active Substance: TRIAMCINOLONE ACETONIDE
     Indication: Psoriasis
     Dosage: UNK
     Route: 065
  2. ATORVASTATIN [Suspect]
     Active Substance: ATORVASTATIN
     Indication: Psoriasis
     Dosage: UNK
     Route: 065
  3. HYDROXYZINE [Suspect]
     Active Substance: HYDROXYZINE HYDROCHLORIDE
     Indication: Psoriasis
     Dosage: UNK
     Route: 065
  4. OMEPRAZOLE [Suspect]
     Active Substance: OMEPRAZOLE
     Indication: Psoriasis
     Dosage: UNK
     Route: 065
  5. LISINOPRIL [Suspect]
     Active Substance: LISINOPRIL
     Indication: Psoriasis
     Dosage: UNK
     Route: 065
  6. TRETINOIN [Suspect]
     Active Substance: TRETINOIN
     Indication: Psoriasis
     Dosage: UNK
     Route: 065
  7. LORATADINE [Suspect]
     Active Substance: LORATADINE
     Indication: Psoriasis
     Dosage: UNK
     Route: 065
  8. PAROXETINE [Suspect]
     Active Substance: PAROXETINE
     Indication: Product used for unknown indication
     Dosage: UNK
     Route: 065

REACTIONS (4)
  - Psoriasis [Unknown]
  - Arthralgia [Unknown]
  - Product use in unapproved indication [Unknown]
  - Drug ineffective [Unknown]
